FAERS Safety Report 15612269 (Version 1)
Quarter: 2018Q4

REPORT INFORMATION
  Report Type: Other
  Country: JP (occurrence: JP)
  Receive Date: 20181113
  Receipt Date: 20181113
  Transmission Date: 20190205
  Serious: Yes (Hospitalization)
  Sender: FDA-Public Use
  Company Number: JP-ACTELION-A-CH2018-174624

PATIENT
  Age: 22 Year
  Sex: Male

DRUGS (2)
  1. EPOPROSTENOL ACT [Suspect]
     Active Substance: EPOPROSTENOL
     Indication: PULMONARY ARTERIAL HYPERTENSION
     Dosage: UNK
     Route: 042
     Dates: start: 2012, end: 201612
  2. PREDNISOLONE. [Concomitant]
     Active Substance: PREDNISOLONE
     Indication: C-REACTIVE PROTEIN INCREASED
     Dosage: UNK
     Dates: start: 201606

REACTIONS (2)
  - C-reactive protein increased [Unknown]
  - Left ventricular hypertrophy [Recovered/Resolved]

NARRATIVE: CASE EVENT DATE: 201606
